FAERS Safety Report 12718479 (Version 1)
Quarter: 2016Q3

REPORT INFORMATION
  Report Type: Spontaneous
  Country: US (occurrence: US)
  Receive Date: 20160906
  Receipt Date: 20160906
  Transmission Date: 20161109
  Serious: Yes (Death, Hospitalization)
  Sender: FDA-Public Use
  Company Number: US-PFIZER INC-2016413566

PATIENT
  Age: 44 Year
  Sex: Female
  Weight: 46.72 kg

DRUGS (12)
  1. ALDACTONE [Concomitant]
     Active Substance: SPIRONOLACTONE
     Indication: OEDEMA
     Dosage: UNK UNK, 1X/DAY (25MG HALF A TABLET ONCE A DAY)
  2. BUMEX [Concomitant]
     Active Substance: BUMETANIDE
     Indication: OEDEMA
     Dosage: UNK UNK, DAILY (1-2MG BY MOUTH DAILY)
     Route: 048
  3. TUMS [Concomitant]
     Active Substance: CALCIUM CARBONATE
     Indication: DYSPEPSIA
     Dosage: 200MG 2 TABLETS DAILY AS NEEDED
  4. OSCAL D [Concomitant]
     Active Substance: CALCIUM CARBONATE\CHOLECALCIFEROL
     Indication: MINERAL SUPPLEMENTATION
     Dosage: 500 MG, 2X/DAY (500MG 1 TABLET TWICE A DAY)
  5. FLOLAN [Concomitant]
     Active Substance: EPOPROSTENOL SODIUM
     Indication: PULMONARY HYPERTENSION
     Dosage: 70 NANOGRAMS/KG/MIN CONTINUOUS INTRAVENOUS
     Route: 042
  6. QVAR [Concomitant]
     Active Substance: BECLOMETHASONE DIPROPIONATE
     Indication: CHRONIC RESPIRATORY FAILURE
  7. WARFARIN [Concomitant]
     Active Substance: WARFARIN
     Indication: COAGULOPATHY
     Dosage: 2.5MG 0.5 TO 2 TABLETS AS DIRECTED
  8. REVATIO [Suspect]
     Active Substance: SILDENAFIL CITRATE
     Indication: PULMONARY HYPERTENSION
     Dosage: 20 MG, 3X/DAY (20MG 1 TABLET THREE TIMES A DAY)
     Dates: start: 2008, end: 20160827
  9. QVAR [Concomitant]
     Active Substance: BECLOMETHASONE DIPROPIONATE
     Indication: DYSPNOEA
     Dosage: 160 UG, 2X/DAY (80 MCG 2 PUFFS 2 TIMES A DAY)
  10. DILAUDID [Concomitant]
     Active Substance: HYDROMORPHONE HYDROCHLORIDE
     Indication: PAIN
     Dosage: 2 MG, UNK (2MG BY MOUTH EVERY 4 HOURS AS NEEDED)
     Route: 048
  11. OXYGEN. [Concomitant]
     Active Substance: OXYGEN
     Dosage: 10 LITERS NASAL CANNULA CONTINUOUS AT HOME
  12. NEURONTIN [Concomitant]
     Active Substance: GABAPENTIN
     Indication: PAIN
     Dosage: 300 MG, 3X/DAY

REACTIONS (11)
  - Condition aggravated [Fatal]
  - Dyspnoea [Not Recovered/Not Resolved]
  - Cardiac failure congestive [Not Recovered/Not Resolved]
  - Respiratory tract infection [Unknown]
  - Pyrexia [Unknown]
  - Pulmonary hypertension [Fatal]
  - Pneumonia [Unknown]
  - Condition aggravated [Not Recovered/Not Resolved]
  - Hypoxia [Fatal]
  - Cardiac failure [Fatal]
  - Chronic respiratory failure [Not Recovered/Not Resolved]

NARRATIVE: CASE EVENT DATE: 201607
